FAERS Safety Report 9231977 (Version 1)
Quarter: 2013Q2

REPORT INFORMATION
  Report Type: Spontaneous
  Country: US (occurrence: US)
  Receive Date: 20130415
  Receipt Date: 20130415
  Transmission Date: 20140414
  Serious: Yes (Life-Threatening)
  Sender: FDA-Public Use
  Company Number: US-BAYER-2013-046519

PATIENT
  Age: 90 Year
  Sex: Male

DRUGS (5)
  1. ALBUTEROL W/IPRATROPIUM [Concomitant]
  2. SILDENAFIL [Suspect]
     Indication: PULMONARY HYPERTENSION
     Dosage: 20 MG, TID
  3. ACETYLSALICYLIC ACID({=100 MG) [Suspect]
     Dosage: DAILY DOSE 81 MG
  4. ROSUVASTATIN [Concomitant]
  5. TAMSULOSIN [Concomitant]

REACTIONS (3)
  - Haemoptysis [Recovered/Resolved]
  - Respiratory failure [None]
  - Off label use [None]
